FAERS Safety Report 6646145-7 (Version None)
Quarter: 2010Q1

REPORT INFORMATION
  Report Type: 
  Country: None (occurrence: None)
  Receive Date: 20100322
  Receipt Date: 20100322
  Transmission Date: 20100710
  Serious: Yes (Other)
  Sender: FDA-Public Use
  Company Number: None

PATIENT
  Age: 54 Year
  Sex: Female
  Weight: 83.9154 kg

DRUGS (3)
  1. FENTANYL [Suspect]
     Indication: PAIN
     Dosage: 75 MCG/HR @72 HR PATCH
     Dates: start: 20091001
  2. FENTANYL [Suspect]
     Indication: PAIN
     Dosage: 75 MCG/HR @72 HR PATCH
     Dates: start: 20091101
  3. MORPHINE SULFATE [Concomitant]

REACTIONS (2)
  - APPLICATION SITE REACTION [None]
  - ERYTHEMA MULTIFORME [None]
